FAERS Safety Report 8771806 (Version 1)
Quarter: 2012Q4

REPORT INFORMATION
  Report Type: 
  Country: CH (occurrence: PT)
  Receive Date: 20120906
  Receipt Date: 20120906
  Transmission Date: 20130627
  Serious: Yes (Other)
  Sender: FDA-Public Use
  Company Number: PT-BAYER-2012-091383

PATIENT
  Age: 57 Year
  Sex: Female

DRUGS (2)
  1. UNSPECIFIED INGREDIENT [Suspect]
     Indication: RHEUMATOID ARTHRITIS
  2. NAPROXEN [Suspect]
     Indication: RHEUMATOID ARTHRITIS

REACTIONS (5)
  - Rheumatoid nodule [None]
  - Arthralgia [None]
  - Polyarthritis [None]
  - Inflammatory pain [None]
  - Drug dependence [None]
